FAERS Safety Report 15179180 (Version 6)
Quarter: 2019Q3

REPORT INFORMATION
  Report Type: Report from Study
  Country: US (occurrence: US)
  Receive Date: 20180723
  Receipt Date: 20190913
  Transmission Date: 20191004
  Serious: Yes (Other)
  Sender: FDA-Public Use
  Company Number: US-TEVA-2018-US-929048

PATIENT
  Sex: Male
  Weight: 90 kg

DRUGS (1)
  1. CLOZAPINE. [Suspect]
     Active Substance: CLOZAPINE
     Indication: SCHIZOAFFECTIVE DISORDER BIPOLAR TYPE
     Dosage: STARTED 4 YEARS AGO
     Route: 048

REACTIONS (2)
  - Drug intolerance [Unknown]
  - Granulocytopenia [Not Recovered/Not Resolved]
